FAERS Safety Report 21740033 (Version 1)
Quarter: 2022Q4

REPORT INFORMATION
  Report Type: Spontaneous
  Country: US (occurrence: None)
  Receive Date: 20221215
  Receipt Date: 20221215
  Transmission Date: 20230112
  Serious: No
  Sender: FDA-Public Use
  Company Number: None

PATIENT
  Age: 71 Year
  Sex: Male
  Weight: 74.7 kg

DRUGS (19)
  1. MONTELUKAST [Suspect]
     Active Substance: MONTELUKAST SODIUM
     Indication: Asthma
     Dosage: FREQUENCY : AT BEDTIME;?
     Route: 048
     Dates: start: 20220826, end: 20221214
  2. Cardiac pacemaker [Concomitant]
  3. DILTIAZEM [Concomitant]
     Active Substance: DILTIAZEM
  4. LOSARTAN [Concomitant]
     Active Substance: LOSARTAN
  5. EPIPEN [Concomitant]
     Active Substance: EPINEPHRINE
  6. ALBUTEROL [Concomitant]
     Active Substance: ALBUTEROL
  7. DULERA [Concomitant]
     Active Substance: FORMOTEROL FUMARATE DIHYDRATE\MOMETASONE FUROATE
  8. TESTOSTERONE [Concomitant]
     Active Substance: TESTOSTERONE
  9. VITAMINS [Concomitant]
     Active Substance: VITAMINS
  10. VITAMIN E [Concomitant]
     Active Substance: .ALPHA.-TOCOPHEROL
  11. FISH OIL [Concomitant]
     Active Substance: FISH OIL
  12. l gluthiasone [Concomitant]
  13. pantathine [Concomitant]
  14. COENZYME Q10 [Concomitant]
     Active Substance: DIETARY SUPPLEMENT\UBIDECARENONE
  15. PLANT STEROLS [Concomitant]
  16. ECKLONIA CAVA [Concomitant]
  17. astragalus [Concomitant]
  18. vitamin D [Concomitant]
  19. vitamin K2 [Concomitant]

REACTIONS (3)
  - Paranasal sinus inflammation [None]
  - Conjunctivitis [None]
  - Eye discharge [None]

NARRATIVE: CASE EVENT DATE: 20221210
